FAERS Safety Report 4491178-2 (Version None)
Quarter: 2004Q3

REPORT INFORMATION
  Report Type: 
  Country: None (occurrence: None)
  Receive Date: 20040927
  Receipt Date: 20040803
  Transmission Date: 20050211
  Serious: No
  Sender: FDA-Public Use
  Company Number: USA040874440

PATIENT
  Age: 8 Year
  Sex: Male

DRUGS (6)
  1. STRATTERA [Suspect]
     Indication: ATTENTION DEFICIT/HYPERACTIVITY DISORDER
     Dosage: 80 MG
     Dates: start: 20030322
  2. ADDERALL 10 [Concomitant]
  3. SINGULAIR (MONTELUKAST) [Concomitant]
  4. TESSALON [Concomitant]
  5. XOPENOX (LEVOSALBUTAMOL) [Concomitant]
  6. PREDNISONE [Concomitant]

REACTIONS (1)
  - MUSCLE TWITCHING [None]
